FAERS Safety Report 18872322 (Version 1)
Quarter: 2021Q1

REPORT INFORMATION
  Report Type: Spontaneous
  Country: US (occurrence: US)
  Receive Date: 20210210
  Receipt Date: 20210210
  Transmission Date: 20210420
  Serious: Yes (Death)
  Sender: FDA-Public Use
  Company Number: None

PATIENT
  Sex: Female

DRUGS (1)
  1. AZATHIOPRINE 50 MG TABLETS TWICE DAILY [Suspect]
     Active Substance: AZATHIOPRINE

REACTIONS (1)
  - Death [None]
